FAERS Safety Report 16144220 (Version 6)
Quarter: 2019Q2

REPORT INFORMATION
  Report Type: Spontaneous
  Country: JP (occurrence: JP)
  Receive Date: 20190401
  Receipt Date: 20190604
  Transmission Date: 20190711
  Serious: Yes (Other)
  Sender: FDA-Public Use
  Company Number: PHHY2019JP072652

PATIENT
  Age: 52 Year
  Sex: Female

DRUGS (11)
  1. DOMPERIDONE [Concomitant]
     Active Substance: DOMPERIDONE
     Indication: PRODUCT USED FOR UNKNOWN INDICATION
     Dosage: UNK
     Route: 065
  2. PROBUCOL [Concomitant]
     Active Substance: PROBUCOL
     Indication: PRODUCT USED FOR UNKNOWN INDICATION
     Dosage: UNK
     Route: 065
  3. RABEPRAZOLE [Concomitant]
     Active Substance: RABEPRAZOLE
     Indication: PRODUCT USED FOR UNKNOWN INDICATION
     Dosage: UNK
     Route: 065
  4. CARBAMAZEPINE. [Interacting]
     Active Substance: CARBAMAZEPINE
     Indication: NEUROLOGICAL SYMPTOM
     Dosage: UNK
     Route: 065
  5. PREDNISOLONE. [Interacting]
     Active Substance: PREDNISOLONE
     Dosage: 5 MG, QD
     Route: 065
  6. EVEROLIMUS. [Interacting]
     Active Substance: EVEROLIMUS
     Indication: CLEAR CELL RENAL CELL CARCINOMA
     Dosage: 10 MG, UNK
     Route: 065
  7. REBAMIPIDE [Concomitant]
     Active Substance: REBAMIPIDE
     Indication: PRODUCT USED FOR UNKNOWN INDICATION
     Dosage: UNK
     Route: 065
  8. FERROUS CITRATE NA [Concomitant]
     Active Substance: SODIUM FERROUS CITRATE
     Indication: PRODUCT USED FOR UNKNOWN INDICATION
     Dosage: UNK
     Route: 065
  9. INTERFERON [Concomitant]
     Active Substance: INTERFERON
     Indication: CLEAR CELL RENAL CELL CARCINOMA
     Dosage: UNK
     Route: 065
  10. PREDNISOLONE. [Suspect]
     Active Substance: PREDNISOLONE
     Indication: CEREBRAL OEDEMA MANAGEMENT
     Dosage: 10 MG, QD
     Route: 065
  11. LANSOPRAZOLE. [Interacting]
     Active Substance: LANSOPRAZOLE
     Indication: PRODUCT USED FOR UNKNOWN INDICATION
     Dosage: UNK
     Route: 065

REACTIONS (2)
  - Drug interaction [Unknown]
  - Product use in unapproved indication [Unknown]
